FAERS Safety Report 17791722 (Version 1)
Quarter: 2020Q2

REPORT INFORMATION
  Report Type: Spontaneous
  Country: NL (occurrence: NL)
  Receive Date: 20200515
  Receipt Date: 20200515
  Transmission Date: 20200714
  Serious: Yes (Other)
  Sender: FDA-Public Use
  Company Number: NL-ACCORD-181680

PATIENT
  Sex: Male
  Weight: 82 kg

DRUGS (1)
  1. ALLOPURINOL. [Suspect]
     Active Substance: ALLOPURINOL
     Indication: GOUT
     Dosage: 1 X PER DAY 2 PIECE
     Dates: start: 201910

REACTIONS (1)
  - Erectile dysfunction [Unknown]
